FAERS Safety Report 25873027 (Version 1)
Quarter: 2025Q4

REPORT INFORMATION
  Report Type: Spontaneous
  Country: US (occurrence: None)
  Receive Date: 20251001
  Receipt Date: 20251001
  Transmission Date: 20260117
  Serious: Yes (Death, Hospitalization)
  Sender: FDA-CTU
  Company Number: None

PATIENT
  Age: 70 Year
  Sex: Female

DRUGS (21)
  1. OPSUMIT [Suspect]
     Active Substance: MACITENTAN
     Indication: Pulmonary hypertension
     Dosage: 10MG QD ORAL
     Route: 048
     Dates: start: 20201009, end: 20250808
  2. top oint [Concomitant]
  3. ciclopirox top soln [Concomitant]
  4. lidocaine top patch [Concomitant]
  5. FUROSEMIDE [Concomitant]
     Active Substance: FUROSEMIDE
  6. AMLODIPINE [Concomitant]
     Active Substance: AMLODIPINE BESYLATE
  7. CARVEDILOL [Concomitant]
     Active Substance: CARVEDILOL
  8. ATORVASTATIN [Concomitant]
     Active Substance: ATORVASTATIN
  9. NORCO [Concomitant]
     Active Substance: ACETAMINOPHEN\HYDROCODONE BITARTRATE
  10. RENVELA [Concomitant]
     Active Substance: SEVELAMER CARBONATE
  11. GABAPENTIN [Concomitant]
     Active Substance: GABAPENTIN
  12. voltaren top gel [Concomitant]
  13. METOCLOPRAMIDE [Concomitant]
     Active Substance: METOCLOPRAMIDE
  14. PANTOPRAZOLE [Concomitant]
     Active Substance: PANTOPRAZOLE
  15. TYLENOL [Concomitant]
     Active Substance: ACETAMINOPHEN
  16. GLIPIZIDE [Concomitant]
     Active Substance: GLIPIZIDE
  17. GUAR GUM [Concomitant]
     Active Substance: GUAR GUM
  18. SIMETHICONE (DIMETHICONE) [Concomitant]
     Active Substance: DIMETHICONE
  19. COLLAGENASE SANTYL [Concomitant]
     Active Substance: COLLAGENASE CLOSTRIDIUM HISTOLYTICUM
  20. CICLOPIROX [Concomitant]
     Active Substance: CICLOPIROX
     Dosage: FREQUENCY : DAILY;?
     Route: 048
     Dates: start: 20201009, end: 20250808
  21. LIDOCAINE [Concomitant]
     Active Substance: LIDOCAINE
     Dosage: FREQUENCY : DAILY;?
     Route: 048
     Dates: start: 20201009, end: 20250808

REACTIONS (5)
  - Femoral neck fracture [None]
  - Fall [None]
  - Haematemesis [None]
  - Pulseless electrical activity [None]
  - Cardiac arrest [None]

NARRATIVE: CASE EVENT DATE: 20250806
